FAERS Safety Report 10388337 (Version 2)
Quarter: 2014Q3

REPORT INFORMATION
  Report Type: Spontaneous
  Country: US (occurrence: US)
  Receive Date: 20140815
  Receipt Date: 20140815
  Transmission Date: 20150326
  Serious: Yes (Hospitalization, Other)
  Sender: FDA-Public Use
  Company Number: US-009507513-2011SP025675

PATIENT
  Sex: Female
  Weight: 77.11 kg

DRUGS (3)
  1. NUVARING [Suspect]
     Active Substance: ETHINYL ESTRADIOL\ETONOGESTREL
     Indication: CONTRACEPTION
     Dosage: UNK
     Route: 067
     Dates: start: 200810, end: 20090619
  2. NUVARING [Suspect]
     Active Substance: ETHINYL ESTRADIOL\ETONOGESTREL
     Indication: DYSFUNCTIONAL UTERINE BLEEDING
  3. NUVARING [Suspect]
     Active Substance: ETHINYL ESTRADIOL\ETONOGESTREL
     Indication: MENSTRUAL CYCLE MANAGEMENT

REACTIONS (17)
  - Pulmonary embolism [Recovering/Resolving]
  - Emotional disorder [Unknown]
  - Mental disorder [Unknown]
  - Pulmonary granuloma [Unknown]
  - Costochondritis [Unknown]
  - Carpal tunnel syndrome [Unknown]
  - Migraine [Unknown]
  - Paraesthesia [Unknown]
  - Rash [Unknown]
  - Deep vein thrombosis [Not Recovered/Not Resolved]
  - Respiratory failure [Unknown]
  - Metrorrhagia [Not Recovered/Not Resolved]
  - Pulmonary infarction [Unknown]
  - Asthma [Not Recovered/Not Resolved]
  - Respiratory alkalosis [Unknown]
  - Cognitive disorder [Unknown]
  - Hypoaesthesia [Unknown]

NARRATIVE: CASE EVENT DATE: 20081223
